FAERS Safety Report 23638583 (Version 1)
Quarter: 2024Q1

REPORT INFORMATION
  Report Type: Spontaneous
  Country: SE (occurrence: SE)
  Receive Date: 20240315
  Receipt Date: 20240315
  Transmission Date: 20240409
  Serious: Yes (Other)
  Sender: FDA-Public Use
  Company Number: None

PATIENT
  Age: 72 Year
  Sex: Female

DRUGS (2)
  1. NAPROXEN [Suspect]
     Active Substance: NAPROXEN
     Indication: Sciatica
     Dosage: UNK
     Route: 065
     Dates: start: 20240102
  2. AMITRIPTYLINE [Suspect]
     Active Substance: AMITRIPTYLINE
     Indication: Sciatica
     Dosage: UNK
     Route: 065
     Dates: start: 20240102

REACTIONS (6)
  - Skin exfoliation [Unknown]
  - Fatigue [Unknown]
  - Dry skin [Unknown]
  - Hypersensitivity [Unknown]
  - Stevens-Johnson syndrome [Unknown]
  - Angioedema [Unknown]

NARRATIVE: CASE EVENT DATE: 20240101
